FAERS Safety Report 8276737-3 (Version None)
Quarter: 2012Q2

REPORT INFORMATION
  Report Type: 
  Country: None (occurrence: None)
  Receive Date: 20120412
  Receipt Date: 20120405
  Transmission Date: 20120825
  Serious: Yes (Hospitalization)
  Sender: FDA-Public Use
  Company Number: DE-PFIZER INC-2012086298

PATIENT
  Age: 69 Year
  Sex: Male

DRUGS (1)
  1. SOMATROPIN [Suspect]
     Indication: HYPOPITUITARISM
     Dosage: 0.1 MG, 1X/DAY
     Dates: start: 20091019

REACTIONS (1)
  - TINNITUS [None]
